FAERS Safety Report 4335490-6 (Version None)
Quarter: 2004Q2

REPORT INFORMATION
  Report Type: 
  Country: None (occurrence: None)
  Receive Date: 20040406
  Receipt Date: 20040324
  Transmission Date: 20050107
  Serious: Yes (Life-Threatening)
  Sender: FDA-Public Use
  Company Number: 2001-BP-00743

PATIENT

DRUGS (8)
  1. VIRAMUNE [Suspect]
     Indication: HIV INFECTION
     Dosage: 400 MG (NR, 1 TABLET BID), PO
     Route: 048
     Dates: start: 20000614
  2. D4T (STAVUDINE) [Suspect]
     Indication: HIV INFECTION
     Dosage: 80 MG, PO
     Route: 048
     Dates: start: 20000614
  3. 3TC (LAMIVUDINE) [Suspect]
     Indication: HIV INFECTION
     Dosage: 300 MG, PO
     Route: 048
     Dates: start: 20000614
  4. ABACAVIR [Suspect]
     Indication: HIV INFECTION
     Dosage: 400 MG, PO
     Route: 048
     Dates: start: 20000614
  5. REGULAR INSULIN [Concomitant]
  6. NPH INSULIN [Concomitant]
  7. ESTROGEN (ESTROGENS) [Concomitant]
  8. BENAZEPRIL HCL [Concomitant]

REACTIONS (1)
  - BLOOD GLUCOSE INCREASED [None]
